FAERS Safety Report 6189808-2 (Version None)
Quarter: 2009Q2

REPORT INFORMATION
  Report Type: 
  Country: None (occurrence: None)
  Receive Date: 20090514
  Receipt Date: 20090504
  Transmission Date: 20091009
  Serious: Yes (Hospitalization)
  Sender: FDA-Public Use
  Company Number: FR-WYE-H07823809

PATIENT
  Sex: Male

DRUGS (14)
  1. CORDARONE [Suspect]
     Indication: ARRHYTHMIA
     Route: 048
     Dates: start: 20081119, end: 20081120
  2. CORDARONE [Suspect]
     Route: 048
     Dates: start: 20081121, end: 20081121
  3. CORDARONE [Suspect]
     Route: 048
     Dates: start: 20081122, end: 20081125
  4. DIGOXIN [Concomitant]
     Indication: ARRHYTHMIA
     Dosage: 0.5 MG SOLUTION,  DOSE AND FREQUENCY NOT SPECIFIED
     Route: 042
     Dates: start: 20081119, end: 20081119
  5. DIGOXIN [Concomitant]
     Dosage: 0.25 MG TABLET, DOSE AND FREQUENCY NOT SPECIFIED
     Route: 048
     Dates: start: 20081120, end: 20081124
  6. ALDACTONE [Concomitant]
     Dosage: DOSE AND FREQUENCY NOT SPECIFIED
     Route: 048
  7. PROPOFAN [Concomitant]
     Dosage: DOSE AND FREQUENCY NOT SPECIFIED
     Route: 048
  8. DIHYDROERGOTAMINE-SANDOZ [Concomitant]
     Dosage: DOSE AND FREQUENCY NOT SPECIFIED
     Route: 065
  9. NEXIUM [Concomitant]
     Dosage: DOSE AND FREQUENCY NOT SPECIFIED
     Route: 065
  10. CAPTOPRIL [Concomitant]
     Dosage: DOSE AND FREQUENCY NOT SPECIFIED
     Route: 048
  11. TAHOR [Concomitant]
     Dosage: DOSE AND FREQUENCY NOT SPECIFIED
     Route: 048
  12. LASIX [Concomitant]
     Indication: CARDIAC FAILURE
     Route: 042
     Dates: start: 20081119, end: 20081120
  13. LASIX [Concomitant]
     Indication: ARRHYTHMIA
     Route: 048
     Dates: start: 20081120
  14. PREVISCAN [Concomitant]
     Dosage: DOSE AND FREQUENCY NOT SPECIFIED
     Route: 048

REACTIONS (3)
  - ACUTE GENERALISED EXANTHEMATOUS PUSTULOSIS [None]
  - CHEILITIS [None]
  - DERMATITIS EXFOLIATIVE [None]
